FAERS Safety Report 4515342-9 (Version None)
Quarter: 2004Q4

REPORT INFORMATION
  Report Type: 
  Country: None (occurrence: None)
  Receive Date: 20041126
  Receipt Date: 20041110
  Transmission Date: 20050328
  Serious: Yes (Other)
  Sender: FDA-Public Use
  Company Number: 2004091490

PATIENT
  Age: 19 Year
  Sex: Female

DRUGS (1)
  1. RELPAX [Suspect]
     Indication: HEADACHE

REACTIONS (2)
  - ANAPHYLACTIC REACTION [None]
  - DYSTONIA [None]
